FAERS Safety Report 23472295 (Version 1)
Quarter: 2024Q1

REPORT INFORMATION
  Report Type: Spontaneous
  Country: FI (occurrence: FI)
  Receive Date: 20240202
  Receipt Date: 20240202
  Transmission Date: 20240410
  Serious: Yes (Hospitalization)
  Sender: FDA-Public Use
  Company Number: None

PATIENT
  Age: 73 Year
  Sex: Male

DRUGS (6)
  1. CAPECITABINE [Suspect]
     Active Substance: CAPECITABINE
     Indication: Neoplasm malignant
     Route: 048
     Dates: start: 20231024, end: 20231030
  2. PANADOL FORTE [Concomitant]
     Dosage: AS NECESSARY
     Dates: start: 20230815
  3. ALPRAZOLAM [Concomitant]
     Active Substance: ALPRAZOLAM
     Dosage: AS NECESSARY
     Dates: start: 20230404
  4. TAMSULOSIN [Concomitant]
     Active Substance: TAMSULOSIN
     Dosage: AS NECESSARY
     Route: 065
     Dates: start: 20230831
  5. ONDANSETRON STADA [Concomitant]
     Dosage: AS NECESSARY
     Dates: start: 20231012
  6. AMLODIPINE BESYLATE [Concomitant]
     Active Substance: AMLODIPINE BESYLATE
     Route: 065
     Dates: start: 20231101

REACTIONS (2)
  - Acute myocardial infarction [Recovered/Resolved]
  - Arteriospasm coronary [Recovered/Resolved]

NARRATIVE: CASE EVENT DATE: 20231029
